FAERS Safety Report 8357182-9 (Version None)
Quarter: 2012Q2

REPORT INFORMATION
  Report Type: 
  Country: None (occurrence: None)
  Receive Date: 20120514
  Receipt Date: 19990317
  Transmission Date: 20120825
  Serious: Yes (Death, Hospitalization, Other)
  Sender: FDA-Public Use
  Company Number: MX-ROCHE-105294

PATIENT
  Sex: Female
  Weight: 57 kg

DRUGS (21)
  1. ZIDOVUDINE [Concomitant]
     Indication: ACQUIRED IMMUNODEFICIENCY SYNDROME
     Route: 048
     Dates: start: 19970616, end: 19980917
  2. DIDANOSINE [Concomitant]
     Indication: ACQUIRED IMMUNODEFICIENCY SYNDROME
     Route: 048
     Dates: start: 19970616, end: 19980917
  3. DIDANOSINE [Concomitant]
     Route: 048
     Dates: start: 19980922, end: 19990316
  4. INVIRASE [Concomitant]
     Indication: ACQUIRED IMMUNODEFICIENCY SYNDROME
     Route: 048
     Dates: start: 19980216, end: 19980917
  5. VALCYTE [Suspect]
     Indication: CYTOMEGALOVIRUS CHORIORETINITIS
     Route: 048
     Dates: start: 19990308, end: 19990311
  6. SULFAMETHOXAZOLE AND TRIMETHOPRIM [Concomitant]
     Route: 048
     Dates: start: 19970616, end: 19980808
  7. VALCYTE [Suspect]
     Route: 048
     Dates: start: 19981005, end: 19981103
  8. VALCYTE [Suspect]
     Route: 048
     Dates: start: 19981117, end: 19990226
  9. LAMIVUDINE (EPIVIR HBV) [Concomitant]
     Dates: start: 19980925, end: 19990316
  10. AMPHOTERICIN B [Concomitant]
     Indication: PNEUMONIA
     Route: 042
     Dates: start: 19980825, end: 19980903
  11. ACETAMINOPHEN [Concomitant]
     Route: 048
  12. RANITIDINE [Concomitant]
     Route: 048
  13. DICLOXACILLIN [Concomitant]
     Route: 048
  14. VALCYTE [Suspect]
     Route: 048
     Dates: start: 19980921, end: 19981003
  15. INDINIVIR SULFATE [Concomitant]
     Route: 065
     Dates: start: 19980925, end: 19990316
  16. VALCYTE [Suspect]
     Route: 048
     Dates: start: 19980908, end: 19980917
  17. ZIDOVUDINE [Concomitant]
     Route: 048
  18. AMIKACIN [Concomitant]
     Indication: PNEUMONIA
     Route: 042
     Dates: start: 19980825, end: 19980903
  19. BACTRIM [Concomitant]
     Route: 065
     Dates: start: 19980807, end: 19990316
  20. GANCICLOVIR SODIUM AND GANCICLOVIR SODIUM [Suspect]
     Indication: CYTOMEGALOVIRUS CHORIORETINITIS
     Route: 042
     Dates: start: 19980811, end: 19980907
  21. PENTAMIDINE [Concomitant]
     Indication: PNEUMONIA
     Route: 042
     Dates: start: 19980825, end: 19980903

REACTIONS (11)
  - BONE MARROW FAILURE [None]
  - SHOCK HAEMORRHAGIC [None]
  - PNEUMONIA [None]
  - NEUTROPENIA [None]
  - EPISTAXIS [None]
  - PYREXIA [None]
  - HEADACHE [None]
  - RENAL FAILURE [None]
  - PRODUCTIVE COUGH [None]
  - AZOTAEMIA [None]
  - THROMBOCYTOPENIA [None]
